FAERS Safety Report 21407280 (Version 2)
Quarter: 2024Q4

REPORT INFORMATION
  Report Type: Spontaneous
  Country: US (occurrence: US)
  Receive Date: 20221004
  Receipt Date: 20241011
  Transmission Date: 20250115
  Serious: Yes (Hospitalization, Other)
  Sender: NOVARTIS
  Company Number: US-NOVARTISPH-NVSC2022US222975

PATIENT
  Age: 68 Year
  Sex: Male

DRUGS (1)
  1. PLUVICTO [Suspect]
     Active Substance: LUTETIUM LU-177 VIPIVOTIDE TETRAXETAN
     Indication: Product used for unknown indication
     Dosage: RECEIVED 1 INJECTION DOSE
     Route: 065
     Dates: start: 20220818, end: 20220818

REACTIONS (3)
  - Ill-defined disorder [Unknown]
  - Cancer pain [Not Recovered/Not Resolved]
  - Anaemia [Not Recovered/Not Resolved]
